FAERS Safety Report 4576318-9 (Version None)
Quarter: 2005Q1

REPORT INFORMATION
  Report Type: 
  Country: None (occurrence: None)
  Receive Date: 20050209
  Receipt Date: 20050114
  Transmission Date: 20050727
  Serious: Yes (Hospitalization, Other)
  Sender: FDA-Public Use
  Company Number: CA-ABBOTT-05P-028-0287666-00

PATIENT
  Sex: Female
  Weight: 63.56 kg

DRUGS (31)
  1. MAVIK [Suspect]
     Indication: DRUG USE FOR UNKNOWN INDICATION
     Dates: start: 20041126
  2. MAVIK [Suspect]
     Dates: start: 20040607, end: 20040621
  3. MAVIK [Suspect]
     Dates: start: 20040621, end: 20040629
  4. MAVIK [Suspect]
     Dates: start: 20040629, end: 20040729
  5. MAVIK [Suspect]
     Dates: start: 20040729, end: 20040826
  6. TARKA [Suspect]
     Indication: DRUG USE FOR UNKNOWN INDICATION
     Dosage: 240 MG/ 4 MG
     Dates: start: 20040826, end: 20041126
  7. VERAPAMIL [Suspect]
     Indication: DRUG USE FOR UNKNOWN INDICATION
     Dates: start: 20041126
  8. UNSPECIFIED HYPERTENSION MEDICATION [Suspect]
     Indication: HYPERTENSION
  9. HYDROCHLOROTHIAZIDE [Concomitant]
     Indication: HYPERTENSION
     Dates: start: 20040621
  10. HYDROCHLOROTHIAZIDE [Concomitant]
     Dates: start: 20040621
  11. TRIAMTERENE [Concomitant]
     Indication: HYPERTENSION
     Dates: end: 20040621
  12. GALENIC /PARACETAMOL/CODEINE/ [Concomitant]
     Indication: ARTHRALGIA
     Dosage: 325 MG/30 MG
     Dates: start: 19990714
  13. ACETYLSALICYLIC ACID [Concomitant]
     Indication: HYPERTENSION
     Dates: start: 19800621
  14. ALBUTEROL [Concomitant]
     Indication: CHRONIC OBSTRUCTIVE PULMONARY DISEASE
     Route: 055
     Dates: start: 19800621
  15. TIMOLOL MALEATE [Concomitant]
     Indication: DRUG USE FOR UNKNOWN INDICATION
  16. ISOSORBIDE DINITRATE [Concomitant]
     Indication: CORONARY ARTERY DISEASE
  17. IPATROPIUM BROMIDE [Concomitant]
     Indication: ASTHMA
  18. IPATROPIUM BROMIDE [Concomitant]
     Indication: COUGH
  19. ALBUTEROL [Concomitant]
     Indication: ASTHMA
  20. ALBUTEROL [Concomitant]
     Indication: COUGH
  21. POTASSIUM CHLORIDE [Concomitant]
     Indication: DRUG USE FOR UNKNOWN INDICATION
  22. POTASSIUM CHLORIDE [Concomitant]
     Dates: start: 20041015, end: 20041015
  23. NITRO-DUR [Concomitant]
     Indication: CORONARY ARTERY DISEASE
  24. UNIDET [Concomitant]
     Indication: DRUG USE FOR UNKNOWN INDICATION
  25. ACETAMINOPHEN [Concomitant]
     Indication: DRUG USE FOR UNKNOWN INDICATION
  26. ALENDRONATE SODIUM [Concomitant]
     Indication: OSTEOPOROSIS
  27. FLUTICASONE PROPIONATE [Concomitant]
     Indication: ASTHMA
     Dates: start: 20001129
  28. SALMETEROL [Concomitant]
     Indication: ASTHMA
     Dates: start: 20001129
  29. ETIDRONATE/CALCIUM [Concomitant]
     Indication: OSTEOPOROSIS
     Dosage: 400 MG/500 MG
  30. INFLUENZA VACCINE [Concomitant]
     Indication: INFLUENZA
     Route: 030
  31. INFLUENZA VIRUS VACCINE POLYVALENT [Concomitant]
     Indication: PROPHYLAXIS

REACTIONS (10)
  - BILE DUCT STONE [None]
  - BLOOD POTASSIUM DECREASED [None]
  - CHOLANGITIS ACUTE [None]
  - DRUG INEFFECTIVE [None]
  - INFLUENZA [None]
  - MUSCLE SPASMS [None]
  - ORTHOSTATIC HYPOTENSION [None]
  - RESTLESS LEGS SYNDROME [None]
  - UPPER RESPIRATORY TRACT INFECTION [None]
  - URINARY INCONTINENCE [None]
